FAERS Safety Report 13656246 (Version 2)
Quarter: 2017Q3

REPORT INFORMATION
  Report Type: Spontaneous
  Country: US (occurrence: US)
  Receive Date: 20170615
  Receipt Date: 20170823
  Transmission Date: 20171127
  Serious: No
  Sender: FDA-Public Use
  Company Number: US-BAYER-2017-114406

PATIENT
  Age: 77 Year

DRUGS (6)
  1. ROSUVASTATIN. [Concomitant]
     Active Substance: ROSUVASTATIN
     Indication: BLOOD CHOLESTEROL INCREASED
     Dosage: 5 MG, QD
     Route: 048
  2. ALEVE [Suspect]
     Active Substance: NAPROXEN SODIUM
  3. PALBOCICLIB [Concomitant]
     Active Substance: PALBOCICLIB
     Indication: LUNG NEOPLASM MALIGNANT
     Dosage: 125 MG, QD (TAKE FOR 21 DAYS, STOP FOR 7 DAYS)
     Dates: start: 20170425
  4. LETROZOLE. [Concomitant]
     Active Substance: LETROZOLE
     Indication: LUNG NEOPLASM MALIGNANT
     Dosage: 2.5 MG, QD
     Dates: start: 20170425
  5. METFORMIN [Concomitant]
     Active Substance: METFORMIN HYDROCHLORIDE
     Indication: DIABETES MELLITUS
     Dosage: 500 MG, QD
     Route: 048
  6. AMLODIPINE BESYLATE. [Concomitant]
     Active Substance: AMLODIPINE BESYLATE
     Indication: BLOOD PRESSURE MANAGEMENT
     Dosage: 10 MG, QD
     Route: 048

REACTIONS (3)
  - Abdominal discomfort [Not Recovered/Not Resolved]
  - Medication residue present [Not Recovered/Not Resolved]
  - Diarrhoea [Not Recovered/Not Resolved]
